FAERS Safety Report 17271418 (Version 2)
Quarter: 2020Q1

REPORT INFORMATION
  Report Type: Spontaneous
  Country: US (occurrence: US)
  Receive Date: 20200115
  Receipt Date: 20200325
  Transmission Date: 20200409
  Serious: Yes (Hospitalization, Other)
  Sender: FDA-Public Use
  Company Number: US-B.I. PHARMACEUTICALS,INC./RIDGEFIELD-2020-BI-001591

PATIENT
  Age: 73 Year
  Sex: Female
  Weight: 68.04 kg

DRUGS (3)
  1. MOBIC [Suspect]
     Active Substance: MELOXICAM
     Indication: RHEUMATOID ARTHRITIS
     Route: 065
     Dates: start: 2009
  2. XELJANZ [Suspect]
     Active Substance: TOFACITINIB CITRATE
     Indication: RHEUMATOID ARTHRITIS
     Route: 065
     Dates: start: 2013, end: 2018
  3. ELIQUIS [Suspect]
     Active Substance: APIXABAN
     Indication: ATRIAL FIBRILLATION
     Route: 065

REACTIONS (6)
  - Internal haemorrhage [Recovered/Resolved]
  - Paralysis [Unknown]
  - Joint swelling [Unknown]
  - Haemorrhage [Recovered/Resolved]
  - Peripheral swelling [Unknown]
  - Spinal fracture [Recovered/Resolved with Sequelae]

NARRATIVE: CASE EVENT DATE: 201712
